FAERS Safety Report 18850218 (Version 1)
Quarter: 2021Q1

REPORT INFORMATION
  Report Type: Spontaneous
  Country: US (occurrence: US)
  Receive Date: 20210204
  Receipt Date: 20210204
  Transmission Date: 20210420
  Serious: No
  Sender: FDA-Public Use
  Company Number: US-ASTRAZENECA-2021A027228

PATIENT
  Age: 54 Year
  Sex: Female

DRUGS (1)
  1. FARXIGA [Suspect]
     Active Substance: DAPAGLIFLOZIN PROPANEDIOL
     Indication: TYPE 2 DIABETES MELLITUS
     Route: 048
     Dates: start: 20210114, end: 20210128

REACTIONS (4)
  - Hot flush [Recovered/Resolved]
  - Feeling hot [Unknown]
  - Asthenia [Unknown]
  - Feeling jittery [Unknown]

NARRATIVE: CASE EVENT DATE: 20210114
